FAERS Safety Report 10031851 (Version 1)
Quarter: 2014Q1

REPORT INFORMATION
  Report Type: Spontaneous
  Country: US (occurrence: US)
  Receive Date: 20140324
  Receipt Date: 20140324
  Transmission Date: 20141002
  Serious: Yes (Other)
  Sender: FDA-Public Use
  Company Number: US-BAYER-2014-044061

PATIENT
  Age: 80 Year
  Sex: Male
  Weight: 54.42 kg

DRUGS (3)
  1. ALEVE CAPLET [Suspect]
     Indication: ARTHRALGIA
     Dosage: 1 DF, TID
     Route: 048
     Dates: start: 20140314, end: 20140320
  2. ALEVE CAPLET [Suspect]
     Indication: INTERVERTEBRAL DISC PROTRUSION
  3. ALEVE CAPLET [Suspect]
     Indication: SCIATICA

REACTIONS (5)
  - Drug ineffective [None]
  - Hyperhidrosis [Recovered/Resolved]
  - Withdrawal syndrome [None]
  - Myocardial infarction [Not Recovered/Not Resolved]
  - Incorrect drug administration duration [None]
